FAERS Safety Report 8378396-8 (Version None)
Quarter: 2012Q2

REPORT INFORMATION
  Report Type: 
  Country: None (occurrence: None)
  Receive Date: 20120522
  Receipt Date: 20120517
  Transmission Date: 20120825
  Serious: Yes (Hospitalization, Other)
  Sender: FDA-Public Use
  Company Number: US-PFIZER INC-2011148093

PATIENT
  Sex: Male
  Weight: 93 kg

DRUGS (3)
  1. NEURONTIN [Suspect]
     Dosage: UNK
  2. LYRICA [Suspect]
     Indication: NEUROPATHY PERIPHERAL
     Dosage: UNK
  3. LYRICA [Suspect]
     Dosage: 50 MG, 1X/DAY
     Route: 048
     Dates: start: 20100101

REACTIONS (11)
  - FALL [None]
  - CORONARY ARTERY OCCLUSION [None]
  - MUSCULOSKELETAL DISCOMFORT [None]
  - CARDIAC VALVE DISEASE [None]
  - MALAISE [None]
  - GOUT [None]
  - BLOOD GLUCOSE DECREASED [None]
  - CAROTID ARTERY OCCLUSION [None]
  - RENAL FAILURE CHRONIC [None]
  - ABDOMINAL DISCOMFORT [None]
  - BLOOD DISORDER [None]
